FAERS Safety Report 23966241 (Version 3)
Quarter: 2024Q3

REPORT INFORMATION
  Report Type: Report from Study
  Country: AR (occurrence: AR)
  Receive Date: 20240612
  Receipt Date: 20240803
  Transmission Date: 20241017
  Serious: Yes (Hospitalization)
  Sender: NOVARTIS
  Company Number: AR-002147023-NVSC2024AR122388

PATIENT
  Age: 39 Year
  Sex: Male

DRUGS (2)
  1. COSENTYX [Suspect]
     Active Substance: SECUKINUMAB
     Indication: Hidradenitis
     Dosage: 600 MG, Q2W
     Route: 058
     Dates: start: 20240409
  2. COSENTYX [Suspect]
     Active Substance: SECUKINUMAB
     Dosage: 300 MG, Q2W (EVERY 15 DAYS)
     Route: 058

REACTIONS (11)
  - Hidradenitis [Not Recovered/Not Resolved]
  - Pain [Unknown]
  - Swelling [Unknown]
  - Inflammation [Unknown]
  - Arthralgia [Unknown]
  - Influenza [Recovering/Resolving]
  - Back pain [Unknown]
  - Burning sensation [Unknown]
  - Headache [Unknown]
  - Therapeutic product effect decreased [Unknown]
  - Off label use [Unknown]

NARRATIVE: CASE EVENT DATE: 20240702
